FAERS Safety Report 7658498-1 (Version None)
Quarter: 2011Q3

REPORT INFORMATION
  Report Type: 
  Country: None (occurrence: None)
  Receive Date: 20110802
  Receipt Date: 20110719
  Transmission Date: 20111222
  Serious: Yes (Hospitalization)
  Sender: FDA-Public Use
  Company Number: 2011GW000386

PATIENT
  Age: 58 Year
  Sex: Male
  Weight: 136.0791 kg

DRUGS (1)
  1. ALDARA [Suspect]
     Indication: SKIN PAPILLOMA
     Dosage: 5 PCT; QOD;TOP
     Route: 061
     Dates: start: 20110702, end: 20110704

REACTIONS (6)
  - INFLUENZA LIKE ILLNESS [None]
  - DYSPNOEA [None]
  - DECREASED APPETITE [None]
  - BODY TEMPERATURE INCREASED [None]
  - FATIGUE [None]
  - UPPER RESPIRATORY TRACT INFECTION [None]
